FAERS Safety Report 9820715 (Version 1)
Quarter: 2013Q4

REPORT INFORMATION
  Report Type: Spontaneous
  Country: US (occurrence: None)
  Receive Date: 20131028
  Receipt Date: 20131028
  Transmission Date: 20140711
  Serious: Yes (Other)
  Sender: FDA-Public Use
  Company Number: 2013UA001367

PATIENT
  Age: 43 Year
  Sex: Female

DRUGS (2)
  1. ICLUSIG [Suspect]
     Route: 048
     Dates: start: 20130308
  2. ICLUSIG [Suspect]
     Indication: TERMINAL STATE
     Route: 048
     Dates: start: 20130308

REACTIONS (2)
  - Off label use [None]
  - Abdominal pain [None]
